FAERS Safety Report 7503813-2 (Version None)
Quarter: 2011Q2

REPORT INFORMATION
  Report Type: 
  Country: None (occurrence: None)
  Receive Date: 20110525
  Receipt Date: 20110510
  Transmission Date: 20111010
  Serious: Yes (Hospitalization, Other)
  Sender: FDA-Public Use
  Company Number: JP-TYCO HEALTHCARE/MALLINCKRODT-T201100686

PATIENT
  Sex: Male
  Weight: 54.3 kg

DRUGS (11)
  1. TS 1 [Concomitant]
     Dosage: 4 CUP BID, DAILY X 2 WEEKS, STOP X 1 WEEK; REPEAT
     Dates: start: 20101104
  2. GEMZAR [Concomitant]
     Dosage: 1200 MG ONCE A WEEK, CONTINUE FOR 2 WEEKS, STOP FOR 1 WEEK
     Dates: start: 20101124
  3. LOCOID                             /00028605/ [Concomitant]
     Dosage: A PROPER DOSE AS NEEDED
     Dates: start: 20101109
  4. DECADRON [Concomitant]
     Dosage: 3.3 MG ONCE A WEEK, CONTINUE FOR 2 WEEKS, STOP FOR 1 WEEK
     Dates: start: 20101124
  5. METHYCOBAL                         /00324901/ [Concomitant]
     Dosage: 1500 MG, TID
     Dates: start: 20110209
  6. LEVOTHYROXINE SODIUM [Concomitant]
     Dosage: 100 ?G, QD
     Dates: start: 20080813
  7. LOPERAMIDE HCL [Concomitant]
     Dosage: 2 MG, BID
     Dates: start: 20110115
  8. METHADONE HCL [Suspect]
     Indication: CANCER PAIN
     Dosage: 15 MG, TID
     Route: 048
     Dates: start: 20101102
  9. TAGAMET                            /00397401/ [Concomitant]
     Dosage: 800 MG, BID
     Dates: start: 20090218
  10. RAMELTEON [Concomitant]
     Dosage: 0.3 ONCE A WEEK, CONTINUE FOR 2 WEEKS, STOP FOR 1 WEEK
     Dates: start: 20101124
  11. ETODOLAC [Concomitant]
     Dosage: 400 MG, BID
     Dates: start: 20090218

REACTIONS (2)
  - DRUG THERAPY CHANGED [None]
  - METASTASES TO LIVER [None]
